FAERS Safety Report 15299451 (Version 1)
Quarter: 2018Q3

REPORT INFORMATION
  Report Type: Spontaneous
  Country: IE (occurrence: IE)
  Receive Date: 20180821
  Receipt Date: 20180821
  Transmission Date: 20181010
  Serious: Yes (Other)
  Sender: FDA-Public Use
  Company Number: IE-TEVA-2018-IE-945459

PATIENT
  Age: 72 Year
  Sex: Female

DRUGS (5)
  1. MONTELUKAST TEVA [Suspect]
     Active Substance: MONTELUKAST SODIUM
     Indication: HYPERSENSITIVITY
     Dosage: 10 MILLIGRAM DAILY;
     Route: 048
     Dates: start: 20180620, end: 20180713
  2. RELVAR ELLIPTA [Concomitant]
     Active Substance: FLUTICASONE FUROATE\VILANTEROL TRIFENATATE
     Indication: ASTHMA
     Route: 048
     Dates: start: 20180320
  3. MONTELUKAST TEVA [Suspect]
     Active Substance: MONTELUKAST SODIUM
     Indication: ASTHMA
  4. TELMISARTAN (G) [Concomitant]
     Indication: BLOOD PRESSURE MEASUREMENT
     Route: 048
     Dates: start: 2017
  5. INCRUSE ELLIPTA [Concomitant]
     Active Substance: UMECLIDINIUM BROMIDE
     Indication: ASTHMA
     Route: 048
     Dates: start: 20180320

REACTIONS (13)
  - Malaise [Recovering/Resolving]
  - Nausea [Recovering/Resolving]
  - Cough [Recovered/Resolved]
  - Irritability [Recovering/Resolving]
  - Depressed mood [Recovering/Resolving]
  - Fatigue [Recovering/Resolving]
  - Hypoaesthesia [Recovering/Resolving]
  - Wheezing [Recovered/Resolved]
  - Anxiety [Recovering/Resolving]
  - Suicidal ideation [Recovering/Resolving]
  - Agitation [Recovering/Resolving]
  - Chills [Recovering/Resolving]
  - Weight decreased [Recovering/Resolving]

NARRATIVE: CASE EVENT DATE: 20180703
